FAERS Safety Report 7087888-3 (Version None)
Quarter: 2010Q4

REPORT INFORMATION
  Report Type: 
  Country: None (occurrence: None)
  Receive Date: 20101108
  Receipt Date: 20101029
  Transmission Date: 20110411
  Serious: Yes (Other)
  Sender: FDA-Public Use
  Company Number: US-US-EMD SERONO, INC.-7011605

PATIENT
  Sex: Female
  Weight: 107 kg

DRUGS (3)
  1. REBIF [Suspect]
     Indication: MULTIPLE SCLEROSIS
     Route: 058
     Dates: start: 20080101
  2. LISINOPRIL [Concomitant]
     Indication: HYPERTENSION
  3. MANY BLOOD PRESSURE MEDICATIONS [Concomitant]
     Indication: HYPERTENSION

REACTIONS (2)
  - DIABETIC NEUROPATHY [None]
  - GLUCOSE TOLERANCE IMPAIRED [None]
